FAERS Safety Report 6925271-9 (Version None)
Quarter: 2010Q3

REPORT INFORMATION
  Report Type: 
  Country: None (occurrence: None)
  Receive Date: 20100810
  Receipt Date: 20100802
  Transmission Date: 20110219
  Serious: Yes (Death)
  Sender: FDA-Public Use
  Company Number: 2010US003090

PATIENT
  Age: 61 Year
  Sex: Male

DRUGS (11)
  1. PROGRAF [Suspect]
     Indication: LIVER TRANSPLANT
     Dosage: 1 MG, BID, ORAL
     Route: 048
  2. PROGRAF [Suspect]
     Indication: RENAL TRANSPLANT
     Dosage: 1 MG, BID, ORAL
     Route: 048
  3. MYFORTIC [Concomitant]
  4. PRAVASTATIN [Concomitant]
  5. REGLAN [Concomitant]
  6. LACTULOSE [Concomitant]
  7. NOVOLOG [Concomitant]
  8. LASIX [Suspect]
  9. DILTIAZEM [Concomitant]
  10. PROMETHAZINE [Concomitant]
  11. OXYGEN (OXYGEN) [Concomitant]

REACTIONS (1)
  - DEATH [None]
